FAERS Safety Report 9257550 (Version 1)
Quarter: 2013Q2

REPORT INFORMATION
  Report Type: Spontaneous
  Country: CO (occurrence: CO)
  Receive Date: 20130426
  Receipt Date: 20130426
  Transmission Date: 20140414
  Serious: Yes (Death)
  Sender: FDA-Public Use
  Company Number: CO-JNJFOC-20130414747

PATIENT
  Age: 66 Year
  Sex: Female

DRUGS (1)
  1. REMINYL [Suspect]
     Indication: AMNESIA
     Route: 048
     Dates: start: 20111123, end: 20130101

REACTIONS (1)
  - Emphysema [Fatal]
